FAERS Safety Report 25905712 (Version 1)
Quarter: 2025Q4

REPORT INFORMATION
  Report Type: Spontaneous
  Country: US (occurrence: US)
  Receive Date: 20251010
  Receipt Date: 20251010
  Transmission Date: 20260118
  Serious: Yes (Life-Threatening, Hospitalization)
  Sender: RICONPHARMA LLC
  Company Number: US-RICONPHARMA, LLC-2025RIC000025

PATIENT

DRUGS (3)
  1. SCOPOLAMINE [Suspect]
     Active Substance: SCOPOLAMINE
     Indication: Product used for unknown indication
     Dosage: 1 MG/ 3DAY
     Route: 062
  2. ESTROGENS [Concomitant]
     Active Substance: ESTROGENS
     Indication: Product used for unknown indication
     Dosage: UNK
     Route: 065
  3. PROGESTERONE [Concomitant]
     Active Substance: PROGESTERONE
     Indication: Product used for unknown indication
     Dosage: UNK
     Route: 065

REACTIONS (7)
  - Delirium [Unknown]
  - Heat stroke [Unknown]
  - Emotional distress [Unknown]
  - Confusional state [Unknown]
  - Mental impairment [Unknown]
  - Toxicity to various agents [Unknown]
  - Patient dissatisfaction with device [Unknown]
